FAERS Safety Report 5862864-4 (Version None)
Quarter: 2008Q3

REPORT INFORMATION
  Report Type: 
  Country: None (occurrence: None)
  Receive Date: 20080828
  Receipt Date: 20080822
  Transmission Date: 20090109
  Serious: Yes (Hospitalization)
  Sender: FDA-Public Use
  Company Number: A0731199A

PATIENT
  Age: 43 Year
  Sex: Male
  Weight: 94.5 kg

DRUGS (3)
  1. AVANDIA [Suspect]
     Dosage: 2MG TWICE PER DAY
     Route: 048
     Dates: start: 20040118, end: 20040327
  2. AVANDAMET [Suspect]
     Route: 048
     Dates: start: 20040624, end: 20040928
  3. DIABETA [Concomitant]

REACTIONS (3)
  - CARDIAC FAILURE CONGESTIVE [None]
  - INJURY [None]
  - PAIN [None]
